FAERS Safety Report 18174373 (Version 1)
Quarter: 2020Q3

REPORT INFORMATION
  Report Type: Spontaneous
  Country: US (occurrence: US)
  Receive Date: 20200820
  Receipt Date: 20200820
  Transmission Date: 20201103
  Serious: Yes (Hospitalization, Disabling)
  Sender: FDA-Public Use
  Company Number: None

PATIENT
  Age: 46 Year
  Sex: Female
  Weight: 121.95 kg

DRUGS (10)
  1. LINASPREL [Concomitant]
  2. LEVOFLOXACIN. [Suspect]
     Active Substance: LEVOFLOXACIN
     Indication: BRONCHITIS
     Dosage: ?          QUANTITY:1 CAPSULE(S);?
     Route: 048
     Dates: start: 20200306, end: 20200309
  3. DUFLUXINE [Concomitant]
  4. MULTIVITAMIN [Concomitant]
     Active Substance: VITAMINS
  5. OMEGA 3 [Concomitant]
     Active Substance: OMEGA-3 FATTY ACIDS
  6. CBD GUMMIES [Concomitant]
  7. CBD DROPS [Concomitant]
  8. VISITRAL [Concomitant]
  9. LEVOFLOXACIN. [Suspect]
     Active Substance: LEVOFLOXACIN
     Indication: PNEUMONIA
     Dosage: ?          QUANTITY:1 CAPSULE(S);?
     Route: 048
     Dates: start: 20200306, end: 20200309
  10. WELLBUTRIN [Concomitant]
     Active Substance: BUPROPION HYDROCHLORIDE

REACTIONS (18)
  - Dizziness [None]
  - Peripheral coldness [None]
  - Hypoaesthesia [None]
  - Headache [None]
  - Non-24-hour sleep-wake disorder [None]
  - Vomiting [None]
  - Arthralgia [None]
  - Hallucination [None]
  - Fatigue [None]
  - Tremor [None]
  - Insomnia [None]
  - Pupil fixed [None]
  - Suicidal ideation [None]
  - Feeling abnormal [None]
  - Myalgia [None]
  - Paraesthesia [None]
  - Loss of consciousness [None]
  - Nausea [None]

NARRATIVE: CASE EVENT DATE: 20200305
